FAERS Safety Report 9981065 (Version 2)
Quarter: 2014Q1

REPORT INFORMATION
  Report Type: Spontaneous
  Country: US (occurrence: US)
  Receive Date: 20140307
  Receipt Date: 20140307
  Transmission Date: 20141002
  Serious: No
  Sender: FDA-Public Use
  Company Number: US-PFIZER INC-2013353793

PATIENT
  Sex: Female

DRUGS (8)
  1. NORVASC [Suspect]
     Dosage: UNK
  2. AMOXICILLIN [Suspect]
     Dosage: UNK
  3. BENICAR [Suspect]
     Dosage: UNK
  4. LOPRESSOR [Suspect]
     Dosage: UNK
  5. OMEPRAZOLE [Suspect]
     Dosage: UNK
  6. CIPROFLOXACIN [Suspect]
     Dosage: UNK
  7. CODEINE [Suspect]
     Dosage: UNK
  8. VICODIN [Suspect]
     Dosage: UNK

REACTIONS (1)
  - Drug hypersensitivity [Unknown]
